FAERS Safety Report 7297092-1 (Version None)
Quarter: 2011Q1

REPORT INFORMATION
  Report Type: 
  Country: None (occurrence: None)
  Receive Date: 20110216
  Receipt Date: 20110213
  Transmission Date: 20110831
  Serious: No
  Sender: FDA-Public Use
  Company Number: US-PFIZER INC-2011031787

PATIENT
  Sex: Female
  Weight: 65.76 kg

DRUGS (1)
  1. PRISTIQ [Suspect]
     Indication: STRESS
     Dosage: 50 MG, 1X/DAY
     Route: 048
     Dates: start: 20110212

REACTIONS (2)
  - FEELING JITTERY [None]
  - HEADACHE [None]
